FAERS Safety Report 5469124-4 (Version None)
Quarter: 2007Q3

REPORT INFORMATION
  Report Type: 
  Country: None (occurrence: None)
  Receive Date: 20070927
  Receipt Date: 20070921
  Transmission Date: 20080115
  Serious: Yes (Death, Hospitalization)
  Sender: FDA-Public Use
  Company Number: PHBS2007FR13070

PATIENT
  Age: 58 Year
  Sex: Male

DRUGS (7)
  1. CARBAMAZEPINE [Suspect]
     Indication: CONVULSION
     Dosage: 900 MG/DAY
     Route: 065
  2. ITRACONAZOLE [Suspect]
     Indication: HISTOPLASMOSIS
     Dosage: 600 MG/DAY
     Route: 048
  3. ITRACONAZOLE [Suspect]
     Dosage: 400 MG/DAY
     Route: 048
  4. AMPHOTERICIN B [Concomitant]
     Dosage: 3 MG/KG/DAY
  5. ITRACONAZOLE [Suspect]
     Route: 042
  6. METHYLPREDNISOLONE [Concomitant]
     Dosage: 250 MG/DAY
     Route: 042
  7. VALPROATE SODIUM [Concomitant]
     Dosage: 1500 MG, UNK
     Route: 048

REACTIONS (7)
  - CONFUSIONAL STATE [None]
  - CONVULSION [None]
  - DRUG INTERACTION [None]
  - GENERAL PHYSICAL HEALTH DETERIORATION [None]
  - HALLUCINATION [None]
  - MULTI-ORGAN FAILURE [None]
  - NEUROLOGICAL SYMPTOM [None]
